FAERS Safety Report 24794198 (Version 3)
Quarter: 2025Q3

REPORT INFORMATION
  Report Type: Report from Study
  Country: CA (occurrence: CA)
  Receive Date: 20241231
  Receipt Date: 20250803
  Transmission Date: 20251020
  Serious: Yes (Other)
  Sender: ALEXION PHARMACEUTICALS
  Company Number: CA-AstraZeneca-CH-00744570A

PATIENT
  Sex: Female

DRUGS (2)
  1. OSIMERTINIB [Suspect]
     Active Substance: OSIMERTINIB
     Indication: Small cell lung cancer metastatic
     Dosage: 80 MILLIGRAM, QD
     Dates: start: 20231229
  2. KEPPRA [Concomitant]
     Active Substance: LEVETIRACETAM
     Route: 065

REACTIONS (4)
  - Malignant neoplasm oligoprogression [Unknown]
  - Metastases to central nervous system [Unknown]
  - Seizure [Unknown]
  - Radiotherapy [Unknown]
